FAERS Safety Report 5289102-8 (Version None)
Quarter: 2007Q1

REPORT INFORMATION
  Report Type: 
  Country: None (occurrence: None)
  Receive Date: 20070124
  Receipt Date: 20060526
  Transmission Date: 20070707
  Serious: Yes (Hospitalization)
  Sender: FDA-Public Use
  Company Number: US200605006302

PATIENT
  Age: 43 Year
  Sex: Female

DRUGS (3)
  1. FORTEO [Suspect]
  2. FORTEO [Concomitant]
  3. ANTIBIOTICS [Concomitant]

REACTIONS (1)
  - PNEUMONIA [None]
